FAERS Safety Report 5800151-0 (Version None)
Quarter: 2008Q3

REPORT INFORMATION
  Report Type: 
  Country: None (occurrence: None)
  Receive Date: 20080702
  Receipt Date: 20080702
  Transmission Date: 20090109
  Serious: Yes (Other)
  Sender: FDA-Public Use
  Company Number: None

PATIENT
  Sex: Male

DRUGS (8)
  1. DIGITEK 0.125MG MYLAN/BERTEK [Suspect]
     Dosage: TAKE 1 TABLET ORALLY DAILY 3/15/08
     Route: 048
     Dates: start: 20080315
  2. ISOSORBIDE MONONITRATE ER [Concomitant]
  3. ALLOPURINOL [Concomitant]
  4. ATENOLOL [Concomitant]
  5. SIMVASTATIN [Concomitant]
  6. WARFARIN SODIUM [Concomitant]
  7. DIOVAN [Concomitant]
  8. PREDNISONE TAB [Concomitant]

REACTIONS (3)
  - NAUSEA [None]
  - PHARMACEUTICAL PRODUCT COMPLAINT [None]
  - RETCHING [None]
